FAERS Safety Report 8587418 (Version 2)
Quarter: 2012Q4

REPORT INFORMATION
  Report Type: 
  Country: JP (occurrence: JP)
  Receive Date: 20120531
  Receipt Date: 20121106
  Transmission Date: 20130627
  Serious: Yes (Other)
  Sender: FDA-Public Use
  Company Number: JP-JNJFOC-20120518788

PATIENT
  Age: 49 Year
  Sex: Male
  Weight: 64 kg

DRUGS (20)
  1. REMICADE [Suspect]
     Indication: COLITIS ULCERATIVE
     Route: 042
     Dates: start: 20120105
  2. REMICADE [Suspect]
     Indication: COLITIS ULCERATIVE
     Route: 042
     Dates: start: 20120302
  3. REMICADE [Suspect]
     Indication: COLITIS ULCERATIVE
     Route: 042
     Dates: start: 20111110
  4. REMICADE [Suspect]
     Indication: COLITIS ULCERATIVE
     Route: 042
     Dates: start: 20110913
  5. REMICADE [Suspect]
     Indication: COLITIS ULCERATIVE
     Route: 042
     Dates: start: 20110816
  6. REMICADE [Suspect]
     Indication: COLITIS ULCERATIVE
     Route: 042
     Dates: start: 20110801
  7. OMEPRAL [Concomitant]
     Indication: PROPHYLAXIS
     Route: 048
     Dates: start: 20111208
  8. BONALON [Concomitant]
     Indication: PROPHYLAXIS
     Route: 048
     Dates: start: 20111208
  9. ASACOL [Concomitant]
     Indication: COLITIS ULCERATIVE
     Route: 048
     Dates: start: 201107
  10. PREDONINE [Concomitant]
     Indication: COLITIS ULCERATIVE
     Route: 048
     Dates: start: 20120105
  11. PREDONINE [Concomitant]
     Indication: COLITIS ULCERATIVE
     Route: 048
     Dates: start: 201107, end: 20110731
  12. PREDONINE [Concomitant]
     Indication: COLITIS ULCERATIVE
     Route: 048
     Dates: start: 20111110, end: 20120104
  13. PREDONINE [Concomitant]
     Indication: COLITIS ULCERATIVE
     Route: 048
     Dates: start: 20111006, end: 20111109
  14. PREDONINE [Concomitant]
     Indication: COLITIS ULCERATIVE
     Route: 048
     Dates: start: 20110801, end: 20111005
  15. LAC-B [Concomitant]
     Indication: COLITIS ULCERATIVE
     Dosage: start date:prior to starting infliximab therapy
     Route: 048
  16. PARIET [Concomitant]
     Indication: PROPHYLAXIS
     Dosage: start date:prior to starting infliximab therapy
     Route: 048
     Dates: end: 20111207
  17. ACTONEL [Concomitant]
     Indication: PROPHYLAXIS
     Dosage: start date:prior to starting infliximab therapy
     Route: 048
     Dates: end: 20111207
  18. IMMUNOMODULATOR [Concomitant]
     Indication: COLITIS ULCERATIVE
     Route: 065
     Dates: start: 20120404
  19. PREDONEMA [Concomitant]
     Indication: COLITIS ULCERATIVE
     Route: 065
     Dates: start: 20120404
  20. PHELLOBERIN [Concomitant]
     Indication: COLITIS ULCERATIVE
     Dosage: dose:6 tab
     Route: 048
     Dates: start: 20120404

REACTIONS (2)
  - Retinal degeneration [Not Recovered/Not Resolved]
  - Optic neuritis [Unknown]
